FAERS Safety Report 7805046-9 (Version None)
Quarter: 2011Q4

REPORT INFORMATION
  Report Type: 
  Country: None (occurrence: None)
  Receive Date: 20111010
  Receipt Date: 20110930
  Transmission Date: 20120403
  Serious: Yes (Congenital Anomaly)
  Sender: FDA-Public Use
  Company Number: US-GLAXOSMITHKLINE-A0948275A

PATIENT
  Sex: Female

DRUGS (1)
  1. PAXIL [Suspect]
     Indication: ANXIETY
     Route: 064

REACTIONS (3)
  - PERSISTENT FOETAL CIRCULATION [None]
  - MATERNAL EXPOSURE DURING PREGNANCY [None]
  - CARDIAC DISORDER [None]
